FAERS Safety Report 24750479 (Version 3)
Quarter: 2025Q1

REPORT INFORMATION
  Report Type: Spontaneous
  Country: CN (occurrence: CN)
  Receive Date: 20241218
  Receipt Date: 20250127
  Transmission Date: 20250409
  Serious: Yes (Other)
  Sender: GILEAD
  Company Number: CN-GILEAD-2024-0696989

PATIENT
  Age: 44 Year
  Sex: Male
  Weight: 58 kg

DRUGS (3)
  1. VIREAD [Suspect]
     Active Substance: TENOFOVIR DISOPROXIL FUMARATE
     Indication: HIV infection
     Dosage: 300 MG, QD
     Route: 065
  2. LAMIVUDINE [Concomitant]
     Active Substance: LAMIVUDINE
  3. EFAVIRENZ [Concomitant]
     Active Substance: EFAVIRENZ

REACTIONS (2)
  - Nephrogenic diabetes insipidus [Unknown]
  - Fanconi syndrome acquired [Unknown]
